FAERS Safety Report 19002327 (Version 1)
Quarter: 2021Q1

REPORT INFORMATION
  Report Type: Spontaneous
  Country: PL (occurrence: PL)
  Receive Date: 20210312
  Receipt Date: 20210312
  Transmission Date: 20210420
  Serious: Yes (Hospitalization, Other)
  Sender: FDA-Public Use
  Company Number: PL-TEVA-2021-PL-1888795

PATIENT
  Age: 54 Year
  Sex: Female

DRUGS (3)
  1. METOPROLOL. [Suspect]
     Active Substance: METOPROLOL
     Route: 065
  2. PERINDOPRIL [Suspect]
     Active Substance: PERINDOPRIL
     Route: 065
  3. CELECOXIB. [Interacting]
     Active Substance: CELECOXIB
     Route: 065

REACTIONS (3)
  - Bradycardia [Unknown]
  - Drug interaction [Unknown]
  - Lip oedema [Unknown]
